FAERS Safety Report 5851106-1 (Version None)
Quarter: 2008Q3

REPORT INFORMATION
  Report Type: 
  Country: None (occurrence: None)
  Receive Date: 20080820
  Receipt Date: 20080814
  Transmission Date: 20090109
  Serious: Yes (Other)
  Sender: FDA-Public Use
  Company Number: A0742627A

PATIENT
  Age: 93 Year
  Sex: Male

DRUGS (6)
  1. ADVAIR DISKUS 100/50 [Suspect]
     Indication: CHRONIC OBSTRUCTIVE PULMONARY DISEASE
     Dosage: 1PUFF PER DAY
     Route: 055
     Dates: start: 20080101, end: 20080801
  2. SPIRIVA [Concomitant]
  3. COUMADIN [Concomitant]
  4. POTASSIUM CHLORIDE [Concomitant]
  5. WATER PILL [Concomitant]
  6. ISOSORBIDE [Concomitant]

REACTIONS (2)
  - HAEMORRHAGE [None]
  - MACULAR DEGENERATION [None]
